FAERS Safety Report 7506380-2 (Version None)
Quarter: 2011Q2

REPORT INFORMATION
  Report Type: 
  Country: None (occurrence: None)
  Receive Date: 20110526
  Receipt Date: 20110517
  Transmission Date: 20111010
  Serious: Yes (Hospitalization, Other)
  Sender: FDA-Public Use
  Company Number: US-AMGEN-USASP2011025563

PATIENT
  Age: 46 Year
  Sex: Male

DRUGS (1)
  1. ENBREL [Suspect]
     Indication: PSORIASIS
     Dosage: 25 MG, 2 TIMES/WK
     Dates: start: 20030101

REACTIONS (5)
  - CARDIAC ARREST [None]
  - GASTROINTESTINAL OEDEMA [None]
  - SKIN DISCOLOURATION [None]
  - SWELLING FACE [None]
  - OEDEMA PERIPHERAL [None]
